FAERS Safety Report 5154205-5 (Version None)
Quarter: 2006Q4

REPORT INFORMATION
  Report Type: 
  Country: None (occurrence: None)
  Receive Date: 20061120
  Receipt Date: 20060608
  Transmission Date: 20070319
  Serious: Yes (Hospitalization)
  Sender: FDA-Public Use
  Company Number: PHEH2006US07520

PATIENT
  Age: 20 Year
  Sex: Female

DRUGS (1)
  1. EXJADE [Suspect]
     Indication: BLOOD IRON INCREASED
     Dosage: 1000 MG, QD
     Route: 048
     Dates: start: 20060306

REACTIONS (7)
  - ACUTE CHEST SYNDROME [None]
  - BLOOD BILIRUBIN INCREASED [None]
  - CHEST PAIN [None]
  - INFLAMMATION [None]
  - OCULAR ICTERUS [None]
  - PAIN [None]
  - SICKLE CELL ANAEMIA WITH CRISIS [None]
